FAERS Safety Report 17417957 (Version 1)
Quarter: 2020Q1

REPORT INFORMATION
  Report Type: Report from Study
  Country: None (occurrence: DE)
  Receive Date: 20200213
  Receipt Date: 20200213
  Transmission Date: 20200409
  Serious: Yes (Death, Hospitalization)
  Sender: FDA-Public Use
  Company Number: DE-ABBVIE-20K-062-3274413-00

PATIENT
  Age: 78 Year
  Sex: Male

DRUGS (1)
  1. DUODOPA [Suspect]
     Active Substance: CARBIDOPA\LEVODOPA
     Indication: PARKINSON^S DISEASE
     Dosage: MD 7.5ML CRD 3.2ML/H ED 1.0ML
     Route: 050
     Dates: start: 20181218

REACTIONS (2)
  - Renal injury [Not Recovered/Not Resolved]
  - Aortic disorder [Fatal]

NARRATIVE: CASE EVENT DATE: 201910
